FAERS Safety Report 7415874-X (Version None)
Quarter: 2011Q2

REPORT INFORMATION
  Report Type: 
  Country: None (occurrence: None)
  Receive Date: 20110414
  Receipt Date: 20110411
  Transmission Date: 20111010
  Serious: Yes (Hospitalization)
  Sender: FDA-Public Use
  Company Number: GB-TEVA-259966ISR

PATIENT
  Sex: Male

DRUGS (11)
  1. GOSERELIN [Concomitant]
     Indication: HORMONE THERAPY
     Route: 058
     Dates: start: 20071101
  2. METFORMIN [Concomitant]
     Dosage: 500 MILLIGRAM;
     Dates: start: 20100426
  3. PARACETAMOL [Concomitant]
     Indication: ARTHRALGIA
     Route: 048
     Dates: start: 20100127
  4. SIMVASTATIN [Concomitant]
     Indication: HYPERCHOLESTEROLAEMIA
     Dosage: 40 MILLIGRAM;
     Route: 048
     Dates: start: 20090401
  5. METFORMIN [Concomitant]
     Indication: DIABETES MELLITUS
     Dosage: 2 GRAM;
     Route: 048
     Dates: start: 20041201
  6. REPAGLINIDE [Concomitant]
     Indication: HYPERGLYCAEMIA
     Dosage: 12 MILLIGRAM;
     Route: 048
     Dates: start: 20100726
  7. RAMIPRIL [Concomitant]
     Indication: HYPERTENSION
     Dosage: 5 MILLIGRAM;
     Route: 048
     Dates: start: 20100125
  8. ABIRATERONE ACETATE VS PLACEBO [Suspect]
     Dosage: 4 DOSAGE FORMS;
     Dates: start: 20101112, end: 20110110
  9. GOSERELIN [Concomitant]
     Indication: PROSTATE CANCER
     Dates: start: 20100212
  10. ABIRATERONE ACETATE VS PLACEBO [Suspect]
     Indication: PROSTATE CANCER METASTATIC
     Route: 048
     Dates: start: 20100212, end: 20101108
  11. PREDNISOLONE [Suspect]
     Indication: PROSTATE CANCER METASTATIC
     Route: 048
     Dates: start: 20100212

REACTIONS (1)
  - TRANSIENT ISCHAEMIC ATTACK [None]
